FAERS Safety Report 5591897-0 (Version None)
Quarter: 2008Q1

REPORT INFORMATION
  Report Type: 
  Country: None (occurrence: None)
  Receive Date: 20080115
  Receipt Date: 20080115
  Transmission Date: 20080703
  Serious: Yes (Hospitalization, Other)
  Sender: FDA-Public Use
  Company Number: US-PURDUE-USA_2007_0030901

PATIENT
  Age: 46 Year
  Sex: Female
  Weight: 59 kg

DRUGS (13)
  1. OXYCONTIN [Suspect]
     Indication: PAIN
     Dosage: 40 MG, Q8H
     Dates: start: 20030101, end: 20040224
  2. ACTIQ [Suspect]
     Indication: PAIN
     Dosage: 3800 MCG, DAILY
     Route: 048
     Dates: start: 20030101, end: 20040224
  3. LEXAPRO [Concomitant]
     Indication: DRUG USE FOR UNKNOWN INDICATION
  4. CLONIDINE [Concomitant]
     Indication: DRUG USE FOR UNKNOWN INDICATION
  5. THIAMINE [Concomitant]
     Indication: DRUG USE FOR UNKNOWN INDICATION
  6. BENTYL [Concomitant]
     Indication: DRUG USE FOR UNKNOWN INDICATION
  7. PHENERGAN HCL [Concomitant]
     Indication: DRUG USE FOR UNKNOWN INDICATION
  8. TRAZODONE HCL [Concomitant]
     Indication: DRUG USE FOR UNKNOWN INDICATION
  9. NEURONTIN [Concomitant]
     Indication: DRUG USE FOR UNKNOWN INDICATION
  10. VISTARIL [Concomitant]
     Indication: DRUG USE FOR UNKNOWN INDICATION
  11. EFFEXOR [Concomitant]
     Indication: DRUG USE FOR UNKNOWN INDICATION
  12. ZYRTEC [Concomitant]
     Indication: DRUG USE FOR UNKNOWN INDICATION
  13. GABITRIL [Concomitant]
     Indication: DRUG USE FOR UNKNOWN INDICATION

REACTIONS (10)
  - ANHEDONIA [None]
  - BEDRIDDEN [None]
  - CRYING [None]
  - DECREASED APPETITE [None]
  - DRUG DEPENDENCE [None]
  - FEELING OF DESPAIR [None]
  - IMPAIRED WORK ABILITY [None]
  - MAJOR DEPRESSION [None]
  - PAIN [None]
  - SUICIDAL IDEATION [None]
